FAERS Safety Report 10257213 (Version 1)
Quarter: 2014Q2

REPORT INFORMATION
  Report Type: Spontaneous
  Country: FR (occurrence: FR)
  Receive Date: 20140625
  Receipt Date: 20140625
  Transmission Date: 20141212
  Serious: Yes (Hospitalization, Other)
  Sender: FDA-Public Use
  Company Number: FR-ELI_LILLY_AND_COMPANY-FR201406004111

PATIENT
  Age: 67 Year
  Sex: Female

DRUGS (20)
  1. ALIMTA [Suspect]
     Indication: LUNG ADENOCARCINOMA STAGE IV
     Dosage: 500 MG/M2, UNK
     Route: 042
     Dates: start: 20130221, end: 20130425
  2. ALIMTA [Suspect]
     Indication: METASTASES TO BONE
  3. ALIMTA [Suspect]
     Indication: METASTASES TO LIVER
  4. GEMZAR [Suspect]
     Indication: LUNG ADENOCARCINOMA STAGE IV
     Dosage: 1775 MG, ON DAY 1 AND 8
     Route: 042
     Dates: start: 20130607
  5. GEMZAR [Suspect]
     Indication: METASTASES TO BONE
     Dosage: 1341 MG, ON DAY 1 AND 15
     Route: 042
     Dates: start: 20130628
  6. GEMZAR [Suspect]
     Indication: METASTASES TO LIVER
     Dosage: 1460 MG, ON DAY 1 AND 15
     Route: 042
     Dates: start: 20130726
  7. GEMZAR [Suspect]
     Dosage: 1460 MG, ON DAY 1 AND 15
     Route: 042
     Dates: start: 20130821
  8. GEMZAR [Suspect]
     Dosage: 1460 MG, ON DAY 1 AND 15
     Route: 042
     Dates: start: 20130918
  9. GEMZAR [Suspect]
     Dosage: 1460 MG, ON DAY 1 AND 15
     Route: 042
     Dates: start: 20131016, end: 20131016
  10. CISPLATINE [Suspect]
     Indication: LUNG ADENOCARCINOMA STAGE IV
     Dosage: 75 MG/M2, UNK
     Route: 042
     Dates: start: 20130221, end: 20130314
  11. CISPLATINE [Suspect]
     Indication: METASTASES TO BONE
  12. CISPLATINE [Suspect]
     Indication: METASTASES TO LIVER
  13. CARBOPLATIN [Suspect]
     Indication: LUNG ADENOCARCINOMA STAGE IV
     Dosage: 296 MG, UNK
     Route: 042
     Dates: start: 20130404
  14. CARBOPLATIN [Suspect]
     Indication: METASTASES TO BONE
     Dosage: 296 MG, UNK
     Route: 042
     Dates: start: 20130424
  15. CARBOPLATIN [Suspect]
     Indication: METASTASES TO LIVER
  16. EUPANTOL [Concomitant]
     Dosage: 40 MG, EACH EVENING
  17. BIPRETERAX                         /01421201/ [Concomitant]
     Dosage: UNK
     Dates: end: 201310
  18. AMLOR [Concomitant]
  19. LOXEN [Concomitant]
  20. NEBIVOLOL [Concomitant]

REACTIONS (5)
  - Electrolyte imbalance [Unknown]
  - Renal failure acute [Not Recovered/Not Resolved]
  - Diarrhoea [Unknown]
  - Dehydration [Unknown]
  - Off label use [Recovered/Resolved]
